FAERS Safety Report 5730493-9 (Version None)
Quarter: 2008Q2

REPORT INFORMATION
  Report Type: 
  Country: None (occurrence: None)
  Receive Date: 20080507
  Receipt Date: 20080430
  Transmission Date: 20081010
  Serious: Yes (Death)
  Sender: FDA-Public Use
  Company Number: CL-BRISTOL-MYERS SQUIBB COMPANY-13666631

PATIENT
  Age: 59 Year
  Sex: Male

DRUGS (3)
  1. CETUXIMAB [Suspect]
     Indication: NON-SMALL CELL LUNG CANCER
     Dosage: THERAPY DATES:06DEC05-17JAN06-ONGOING.
     Route: 042
     Dates: start: 20060117, end: 20060117
  2. CISPLATIN [Suspect]
     Indication: NON-SMALL CELL LUNG CANCER
     Dosage: THERAPY DATES:06DEC05-ONGOING.
     Route: 042
     Dates: start: 20060110, end: 20060110
  3. VINORELBINE [Suspect]
     Indication: NON-SMALL CELL LUNG CANCER
     Dosage: THERAPY DATES:06DEC05-ONGOING.
     Route: 042
     Dates: start: 20060117, end: 20060117

REACTIONS (1)
  - DEHYDRATION [None]
